FAERS Safety Report 26153943 (Version 1)
Quarter: 2025Q4

REPORT INFORMATION
  Report Type: Report from Study
  Country: US (occurrence: US)
  Receive Date: 20251215
  Receipt Date: 20251215
  Transmission Date: 20260117
  Serious: Yes (Death)
  Sender: ALEXION PHARMACEUTICALS
  Company Number: US-ASTRAZENECA-202512NAM009493US

PATIENT
  Age: 79 Year
  Sex: Female

DRUGS (1)
  1. OSIMERTINIB [Suspect]
     Active Substance: OSIMERTINIB
     Indication: Investigation abnormal
     Dosage: 80 MILLIGRAM, QD
     Route: 061
     Dates: start: 202504

REACTIONS (1)
  - Death [Fatal]

NARRATIVE: CASE EVENT DATE: 20251120
